FAERS Safety Report 6530938-0 (Version None)
Quarter: 2010Q1

REPORT INFORMATION
  Report Type: 
  Country: None (occurrence: None)
  Receive Date: 20100108
  Receipt Date: 20090729
  Transmission Date: 20100710
  Serious: No
  Sender: FDA-Public Use
  Company Number: A0793095A

PATIENT
  Age: 75 Year
  Sex: Female

DRUGS (8)
  1. LOVAZA [Suspect]
     Indication: BLOOD CHOLESTEROL ABNORMAL
     Dosage: 2CAP TWICE PER DAY
     Route: 048
     Dates: start: 20090101
  2. HYZAAR [Concomitant]
  3. KLOR-CON [Concomitant]
  4. ACIPHEX [Concomitant]
  5. GLUCOSAMINE SULFATE [Concomitant]
  6. MULTI-VITAMIN [Concomitant]
  7. VITAMIN D [Concomitant]
  8. TUMS [Concomitant]

REACTIONS (2)
  - ERUCTATION [None]
  - INCORRECT STORAGE OF DRUG [None]
